FAERS Safety Report 21371929 (Version 1)
Quarter: 2022Q3

REPORT INFORMATION
  Report Type: Spontaneous
  Country: JP (occurrence: JP)
  Receive Date: 20220923
  Receipt Date: 20220923
  Transmission Date: 20221027
  Serious: Yes (Death, Hospitalization, Other)
  Sender: FDA-Public Use
  Company Number: JP-SYMBIO-202200187

PATIENT
  Age: 82 Year
  Sex: Male

DRUGS (12)
  1. BENDAMUSTINE HYDROCHLORIDE [Suspect]
     Active Substance: BENDAMUSTINE HYDROCHLORIDE
     Indication: Follicular lymphoma
     Dosage: (ONCE DAILY)
     Route: 041
     Dates: start: 20180905, end: 20190123
  2. BENDAMUSTINE HYDROCHLORIDE [Suspect]
     Active Substance: BENDAMUSTINE HYDROCHLORIDE
     Dosage: 60 MG/M2 DAILY;
     Route: 041
     Dates: start: 20210915, end: 20210916
  3. BENDAMUSTINE HYDROCHLORIDE [Suspect]
     Active Substance: BENDAMUSTINE HYDROCHLORIDE
     Dosage: 60 MG/M2 DAILY;
     Route: 041
     Dates: start: 20211013, end: 20211014
  4. BENDAMUSTINE HYDROCHLORIDE [Suspect]
     Active Substance: BENDAMUSTINE HYDROCHLORIDE
     Dosage: 60 MG/M2 DAILY;
     Route: 041
     Dates: start: 20211110, end: 20211111
  5. BENDAMUSTINE HYDROCHLORIDE [Suspect]
     Active Substance: BENDAMUSTINE HYDROCHLORIDE
     Dosage: 60 MG/M2 DAILY;
     Route: 041
     Dates: start: 20211208, end: 20211209
  6. RITUXAN [Suspect]
     Active Substance: RITUXIMAB
     Indication: Follicular lymphoma
     Dosage: (ONCE DAILY)
     Route: 041
     Dates: start: 20180905, end: 20190123
  7. RITUXAN [Suspect]
     Active Substance: RITUXIMAB
     Dosage: 375 MG/M2 DAILY;
     Route: 041
     Dates: start: 20211013, end: 20211013
  8. RITUXAN [Suspect]
     Active Substance: RITUXIMAB
     Dosage: 375 MG/M2 DAILY;
     Route: 041
     Dates: start: 20211110, end: 20211110
  9. RITUXAN [Suspect]
     Active Substance: RITUXIMAB
     Dosage: 375 MG/M2 DAILY;
     Route: 041
     Dates: start: 20211208, end: 20211208
  10. LANSOPRAZOLE [Concomitant]
     Active Substance: LANSOPRAZOLE
     Indication: Prophylaxis against gastrointestinal ulcer
     Dosage: 15 MILLIGRAM DAILY;
     Route: 048
     Dates: start: 2018, end: 20220727
  11. SULFAMETHOXAZOLE\TRIMETHOPRIM [Concomitant]
     Active Substance: SULFAMETHOXAZOLE\TRIMETHOPRIM
     Indication: Prophylaxis
     Dosage: .5 DOSAGE FORMS DAILY;
     Route: 048
     Dates: start: 2018, end: 20220727
  12. ZOVIRAX [Concomitant]
     Active Substance: ACYCLOVIR
     Indication: Prophylaxis
     Dosage: 200 MILLIGRAM DAILY;
     Route: 048
     Dates: start: 2018, end: 20220502

REACTIONS (2)
  - COVID-19 pneumonia [Fatal]
  - Pneumothorax [Unknown]

NARRATIVE: CASE EVENT DATE: 20220315
